FAERS Safety Report 5070962-0 (Version None)
Quarter: 2006Q3

REPORT INFORMATION
  Report Type: 
  Country: None (occurrence: None)
  Receive Date: 20060804
  Receipt Date: 20060731
  Transmission Date: 20061208
  Serious: Yes (Hospitalization)
  Sender: FDA-Public Use
  Company Number: JP-BAYER-200613272GDS

PATIENT
  Age: 78 Year
  Sex: Female

DRUGS (2)
  1. ASPIRIN [Suspect]
     Indication: ATRIAL FIBRILLATION
     Dosage: TOTAL DAILY DOSE: 100 MG  UNIT DOSE: 100 MG
     Route: 048
  2. LORNOXICAM [Interacting]
     Indication: BACK PAIN
     Route: 065

REACTIONS (5)
  - ASCITES [None]
  - INTESTINAL DILATATION [None]
  - INTESTINAL ULCER [None]
  - LARGE INTESTINE PERFORATION [None]
  - PERITONITIS [None]
